FAERS Safety Report 7539335-2 (Version None)
Quarter: 2011Q2

REPORT INFORMATION
  Report Type: 
  Country: None (occurrence: None)
  Receive Date: 20110610
  Receipt Date: 20110527
  Transmission Date: 20111010
  Serious: Yes (Other)
  Sender: FDA-Public Use
  Company Number: PE-JNJFOC-20110400377

PATIENT
  Age: 32 Year
  Sex: Male

DRUGS (3)
  1. REMICADE [Suspect]
     Route: 042
     Dates: start: 20110215
  2. REMICADE [Suspect]
     Route: 042
     Dates: start: 20110526
  3. REMICADE [Suspect]
     Indication: RHEUMATOID ARTHRITIS
     Route: 042
     Dates: start: 20110329

REACTIONS (6)
  - URTICARIA [None]
  - PRURITUS [None]
  - NAUSEA [None]
  - VOMITING [None]
  - INFUSION RELATED REACTION [None]
  - TACHYCARDIA [None]
